FAERS Safety Report 10885672 (Version 2)
Quarter: 2015Q3

REPORT INFORMATION
  Report Type: Spontaneous
  Country: DE (occurrence: JP)
  Receive Date: 20150304
  Receipt Date: 20150924
  Transmission Date: 20151125
  Serious: Yes (Hospitalization)
  Sender: FDA-Public Use
  Company Number: JP-FRI-1000074894

PATIENT
  Age: 95 Year
  Sex: Male

DRUGS (11)
  1. TRAZENTA [Concomitant]
     Active Substance: LINAGLIPTIN
     Dates: start: 20140827, end: 20150217
  2. FEBURIC [Concomitant]
     Active Substance: FEBUXOSTAT
     Dates: start: 20140830, end: 20150217
  3. FUROSEMIDE. [Concomitant]
     Active Substance: FUROSEMIDE
     Dates: start: 20140605, end: 20150217
  4. ALDACTONE-A [Concomitant]
     Active Substance: SPIRONOLACTONE
     Dates: start: 20140514, end: 20150217
  5. MAGMITT [Concomitant]
     Active Substance: MAGNESIUM OXIDE
     Dates: start: 20141114, end: 20150217
  6. TALION [Concomitant]
     Active Substance: BEPOTASTINE
     Dates: start: 20150213, end: 20150217
  7. GLIMEPIRIDE. [Concomitant]
     Active Substance: GLIMEPIRIDE
     Dates: start: 20140827, end: 20150217
  8. MEMANTINE. [Suspect]
     Active Substance: MEMANTINE
     Indication: DEMENTIA ALZHEIMER^S TYPE
     Dosage: 20 MG
     Route: 048
     Dates: start: 20140324, end: 20150217
  9. GRACEVIT [Suspect]
     Active Substance: SITAFLOXACIN
     Indication: PNEUMONIA
     Dosage: 500 MG
     Route: 048
     Dates: start: 20150216, end: 20150217
  10. ZITHROMAC [Concomitant]
     Active Substance: AZITHROMYCIN DIHYDRATE
     Dates: start: 20150213, end: 20150215
  11. RESPLEN [Concomitant]
     Active Substance: EPRAZINONE
     Dates: start: 20150213, end: 20150217

REACTIONS (2)
  - Seizure [Recovered/Resolved]
  - Brain stem infarction [Unknown]

NARRATIVE: CASE EVENT DATE: 20150218
